FAERS Safety Report 24154350 (Version 5)
Quarter: 2024Q4

REPORT INFORMATION
  Report Type: Spontaneous
  Country: GB (occurrence: GB)
  Receive Date: 20240730
  Receipt Date: 20241008
  Transmission Date: 20250114
  Serious: Yes (Disabling, Other)
  Sender: PFIZER
  Company Number: GB-Flynn Pharma Ltd.-FLY20240700205

PATIENT
  Age: 94 Year
  Sex: Female

DRUGS (8)
  1. PHENYTOIN [Suspect]
     Active Substance: PHENYTOIN
     Indication: Epilepsy
     Dosage: 125 MG, 1X/DAY
     Route: 048
     Dates: start: 200402, end: 202308
  2. LEVETIRACETAM [Concomitant]
     Active Substance: LEVETIRACETAM
     Indication: Seizure
     Dosage: 250 MG, 1X/DAY
  3. ASPIRIN [Concomitant]
     Active Substance: ASPIRIN
     Dosage: 75MG, 1X/DAY (LAST ISSUED 21-AUG-2024)
  4. CARBOCYSTEINE [Concomitant]
     Active Substance: CARBOCYSTEINE
     Dosage: 750MG, 1X/DAY (LAST ISSUED ON 11-SEP-2024)
  5. GABAPENTIN [Concomitant]
     Active Substance: GABAPENTIN
     Dosage: 100 MG, 1X/DAY (TAKE ONE CAPSULE EACH NIGHT. LAST ISSUED ON 11-SEP-2024)
  6. LANSOPRAZOLE [Concomitant]
     Active Substance: LANSOPRAZOLE
     Dosage: 15MG, 1X/DAY (LAST ISSUED 26-JUL-2024)
  7. LEVOTHYROXINE SODIUM [Concomitant]
     Active Substance: LEVOTHYROXINE SODIUM
     Dosage: 50 UG, 1X/DAY(ONE TO BE TAKEN EACH MORNING PREFERABLY 30-60 MINUTES BEFORE BREAKFAST, CAFFEINE-CONTA
  8. ROSUVASTATIN [Concomitant]
     Active Substance: ROSUVASTATIN
     Dosage: 5MG, 1X/DAY (LAST ISSUED 26-JUL-2024)

REACTIONS (9)
  - Neuropathy peripheral [Not Recovered/Not Resolved]
  - Mobility decreased [Unknown]
  - Poor quality sleep [Unknown]
  - Paraesthesia [Unknown]
  - Hypoaesthesia [Unknown]
  - Emotional distress [Unknown]
  - Muscle spasms [Unknown]
  - Depressed mood [Unknown]
  - Gait disturbance [Unknown]

NARRATIVE: CASE EVENT DATE: 20150101
